FAERS Safety Report 11071929 (Version 2)
Quarter: 2015Q2

REPORT INFORMATION
  Report Type: Spontaneous
  Country: CH (occurrence: CH)
  Receive Date: 20150428
  Receipt Date: 20150429
  Transmission Date: 20150821
  Serious: Yes (Other)
  Sender: FDA-Public Use
  Company Number: CH-PFIZER INC-2015137644

PATIENT
  Age: 8 Decade
  Sex: Male

DRUGS (1)
  1. LYRICA [Suspect]
     Active Substance: PREGABALIN
     Dosage: 300 MG PER DAY IN TWO DOSES

REACTIONS (3)
  - Sepsis [Unknown]
  - Peripheral swelling [Unknown]
  - Cardiac failure [Unknown]
